FAERS Safety Report 13627382 (Version 2)
Quarter: 2017Q2

REPORT INFORMATION
  Report Type: Spontaneous
  Country: SE (occurrence: SE)
  Receive Date: 20170607
  Receipt Date: 20170619
  Transmission Date: 20170830
  Serious: Yes (Other)
  Sender: FDA-Public Use
  Company Number: SE-GILEAD-2017-0276041

PATIENT
  Age: 69 Year
  Sex: Female

DRUGS (13)
  1. PENTACARINAT [Concomitant]
     Active Substance: PENTAMIDINE ISETHIONATE
  2. ACICLOVIR [Concomitant]
     Active Substance: ACYCLOVIR
  3. OVESTERIN [Concomitant]
     Active Substance: ESTRIOL
  4. IDELALISIB [Suspect]
     Active Substance: IDELALISIB
     Indication: CHRONIC LYMPHOCYTIC LEUKAEMIA
     Dosage: 150 MG, BID
     Route: 065
     Dates: start: 20170208
  5. CALCICHEW-D3 [Concomitant]
     Active Substance: CALCIUM\CHOLECALCIFEROL
  6. FOLACIN                            /00024201/ [Concomitant]
     Active Substance: FOLIC ACID
  7. LACTULOSE. [Concomitant]
     Active Substance: LACTULOSE
  8. XARELTO [Concomitant]
     Active Substance: RIVAROXABAN
  9. ATENOLOL. [Concomitant]
     Active Substance: ATENOLOL
  10. ALVEDON [Concomitant]
     Active Substance: ACETAMINOPHEN
  11. MAGNESIUM [Concomitant]
     Active Substance: MAGNESIUM
  12. ALLOPURINOL. [Concomitant]
     Active Substance: ALLOPURINOL
  13. ZOPICLONE [Concomitant]
     Active Substance: ZOPICLONE

REACTIONS (2)
  - Pericardial effusion [Not Recovered/Not Resolved]
  - Pleural effusion [Not Recovered/Not Resolved]

NARRATIVE: CASE EVENT DATE: 2017
